FAERS Safety Report 7347330 (Version 3)
Quarter: 2012Q4

REPORT INFORMATION
  Report Type: 
  Country: CN (occurrence: CN)
  Receive Date: 20100407
  Receipt Date: 20121217
  Transmission Date: 20130627
  Serious: Yes (Disabling)
  Sender: FDA-Public Use
  Company Number: PHHY2010CN19603

PATIENT
  Age: 13 Year
  Sex: Female

DRUGS (3)
  1. GLIVEC [Suspect]
     Indication: CHRONIC MYELOID LEUKAEMIA
     Dosage: Tablet 400 mg; QD
     Route: 048
     Dates: start: 20091222, end: 20100329
  2. GLIVEC [Suspect]
     Dosage: 400 mg; 1 tablet once daily
     Route: 048
  3. GLIVEC [Suspect]
     Dosage: Capsule
     Route: 048
     Dates: end: 200610

REACTIONS (4)
  - Learning disability [Recovering/Resolving]
  - Vomiting [Recovering/Resolving]
  - Abdominal pain [Recovering/Resolving]
  - Diarrhoea [Recovering/Resolving]
